FAERS Safety Report 6376078-5 (Version None)
Quarter: 2009Q3

REPORT INFORMATION
  Report Type: 
  Country: None (occurrence: None)
  Receive Date: 20090918
  Receipt Date: 20090904
  Transmission Date: 20100115
  Serious: Yes (Other)
  Sender: FDA-Public Use
  Company Number: A20090714-001

PATIENT
  Age: 81 Year
  Sex: Female

DRUGS (11)
  1. PITAVASTATIN CALCIUM [Suspect]
     Indication: DYSLIPIDAEMIA
     Dosage: 1MG PO
     Route: 048
     Dates: start: 20090401, end: 20090818
  2. CANDESARTAN CILEXETIL [Concomitant]
  3. DIASTASE COMBINED DRUG [Concomitant]
  4. VERAPAMIL HYDROCHLORIDE [Concomitant]
  5. DISOPYRAMIDE [Concomitant]
  6. ETIZOLAM [Concomitant]
  7. DIAZEPAM [Concomitant]
  8. TRIAZOLAM [Concomitant]
  9. NIMETAZEPAM [Concomitant]
  10. MILNACIPRAN HYDROCHLORIDE [Concomitant]
  11. CLOMIPRAMINE HCL [Concomitant]

REACTIONS (11)
  - ASPARTATE AMINOTRANSFERASE INCREASED [None]
  - BLOOD ALKALINE PHOSPHATASE INCREASED [None]
  - BLOOD LACTATE DEHYDROGENASE INCREASED [None]
  - BLOOD THYROID STIMULATING HORMONE DECREASED [None]
  - BLOOD UREA INCREASED [None]
  - CEREBRAL INFARCTION [None]
  - FALL [None]
  - MOVEMENT DISORDER [None]
  - NEUTROPHIL COUNT INCREASED [None]
  - RHABDOMYOLYSIS [None]
  - TRI-IODOTHYRONINE FREE DECREASED [None]
